FAERS Safety Report 7010687-5 (Version None)
Quarter: 2010Q3

REPORT INFORMATION
  Report Type: 
  Country: None (occurrence: None)
  Receive Date: 20100923
  Receipt Date: 20100917
  Transmission Date: 20110219
  Serious: Yes (Other)
  Sender: FDA-Public Use
  Company Number: PHHY2010DE62512

PATIENT
  Sex: Female

DRUGS (2)
  1. EXTAVIA [Suspect]
     Indication: MULTIPLE SCLEROSIS
     Dosage: 1 ML, QD
     Route: 058
     Dates: start: 20100719
  2. EXTAVIA [Suspect]
     Dosage: .5 ML, QD
     Route: 058
     Dates: end: 20100916

REACTIONS (3)
  - ABASIA [None]
  - PANIC ATTACK [None]
  - PYREXIA [None]
